FAERS Safety Report 7469289-9 (Version None)
Quarter: 2011Q2

REPORT INFORMATION
  Report Type: 
  Country: None (occurrence: None)
  Receive Date: 20110510
  Receipt Date: 20110505
  Transmission Date: 20111010
  Serious: Yes (Hospitalization, Disabling, Other)
  Sender: FDA-Public Use
  Company Number: US-PFIZER INC-2011097505

PATIENT
  Sex: Male
  Weight: 156 kg

DRUGS (18)
  1. LOVAZA [Concomitant]
     Dosage: 1000 MG, 2X/DAY
  2. ZANTAC [Concomitant]
     Indication: GASTRIC BYPASS
     Dosage: 150 MG, 3X/DAY
  3. CALCIUM WITH VITAMIN D [Concomitant]
     Dosage: 500 MG, 3X/DAY
  4. VITAMIN E [Concomitant]
     Dosage: 400 IU, 1X/DAY
  5. VITAMIN C [Concomitant]
     Dosage: 1000 MG, 1X/DAY
  6. VITAMIN B-12 [Concomitant]
     Dosage: 1000 MG, 1X/DAY
  7. LANTUS [Concomitant]
     Indication: DIABETES MELLITUS
     Dosage: UNK
  8. ATENOLOL [Concomitant]
     Indication: HEART RATE ABNORMAL
     Dosage: 50 MG, 1X/DAY
  9. ISOPHANE INSULIN [Concomitant]
     Indication: DIABETES MELLITUS
     Dosage: UNK
  10. NEURONTIN [Suspect]
     Indication: NERVOUS SYSTEM DISORDER
  11. COZAAR [Concomitant]
     Indication: HYPERTENSION
     Dosage: 25 MG, 1X/DAY
  12. LASIX [Concomitant]
     Indication: FLUID RETENTION
     Dosage: 40 MG, 1X/DAY
  13. GABAPENTIN [Concomitant]
     Dosage: 300 MG, 3X/DAY
  14. CLONIDINE [Concomitant]
     Indication: HYPERTENSION
     Dosage: 0.2 MG, 3X/DAY
  15. POTASSIUM [Concomitant]
     Dosage: 20 MG, AS NEEDED
  16. NEURONTIN [Suspect]
     Indication: NEUROPATHY PERIPHERAL
     Dosage: UNK
     Dates: start: 20100101, end: 20110316
  17. ACETYLSALICYLIC ACID [Concomitant]
     Dosage: 81 MG, 1X/DAY
  18. GARLIC [Concomitant]
     Dosage: 1200 IU, 1X/DAY

REACTIONS (4)
  - WALKING DISABILITY [None]
  - TRANSIENT ISCHAEMIC ATTACK [None]
  - CEREBROVASCULAR ACCIDENT [None]
  - SPEECH DISORDER [None]
